FAERS Safety Report 12223269 (Version 1)
Quarter: 2016Q1

REPORT INFORMATION
  Report Type: Spontaneous
  Country: ES (occurrence: ES)
  Receive Date: 20160330
  Receipt Date: 20160330
  Transmission Date: 20160526
  Serious: Yes (Other)
  Sender: FDA-Public Use
  Company Number: ES-ELI_LILLY_AND_COMPANY-ES201603007818

PATIENT
  Age: 50 Year
  Sex: Male

DRUGS (2)
  1. CYRAMZA [Suspect]
     Active Substance: RAMUCIRUMAB
     Indication: GASTRIC CANCER STAGE IV
     Dosage: UNK, CYCLICAL
     Route: 065
     Dates: start: 201602
  2. TAXOL [Suspect]
     Active Substance: PACLITAXEL
     Indication: GASTRIC CANCER STAGE IV
     Dosage: UNK
     Route: 065
     Dates: start: 201602

REACTIONS (6)
  - Gastric dilatation [Unknown]
  - Pulmonary embolism [Unknown]
  - Fatigue [Unknown]
  - Swelling face [Unknown]
  - Abdominal pain upper [Unknown]
  - Arrhythmia [Unknown]
